FAERS Safety Report 5264159-9 (Version None)
Quarter: 2007Q1

REPORT INFORMATION
  Report Type: 
  Country: None (occurrence: None)
  Receive Date: 20070313
  Receipt Date: 20070305
  Transmission Date: 20070707
  Serious: Yes (Other)
  Sender: FDA-Public Use
  Company Number: US-KINGPHARMUSA00001-K200700251

PATIENT

DRUGS (10)
  1. TIGAN CAPSULES [Suspect]
     Indication: ANTIEMETIC SUPPORTIVE CARE
     Dosage: 300 MG, TID
     Route: 048
     Dates: start: 20061109, end: 20061124
  2. TIGAN CAPSULES [Suspect]
     Dosage: 300 MG, SINGLE
     Route: 048
     Dates: start: 20061207, end: 20061207
  3. APOKYN [Suspect]
     Indication: PARKINSON'S DISEASE
     Dosage: 0.2-0.3 ML, TOTAL 5 DOSES
     Route: 058
     Dates: start: 20061113, end: 20061209
  4. CARBIDOPA W/LEVODOPA [Concomitant]
     Dosage: 50/200
  5. CARBIDOPA W/LEVODOPA [Concomitant]
     Dosage: 25/25
  6. SANCTURA [Concomitant]
  7. ARICEPT [Concomitant]
  8. MULTIVITAMIN      /00831701/ [Concomitant]
  9. CALCIUM [Concomitant]
  10. VITAMIN C /00008001/ [Concomitant]

REACTIONS (4)
  - DEMENTIA [None]
  - GAIT DISTURBANCE [None]
  - LABILE BLOOD PRESSURE [None]
  - SOMNOLENCE [None]
